FAERS Safety Report 15001234 (Version 1)
Quarter: 2018Q2

REPORT INFORMATION
  Report Type: Spontaneous
  Country: JP (occurrence: JP)
  Receive Date: 20180612
  Receipt Date: 20180612
  Transmission Date: 20180711
  Serious: Yes (Other)
  Sender: FDA-Public Use
  Company Number: JP-ASTRAZENECA-2017SF20526

PATIENT
  Age: 86 Year
  Sex: Female

DRUGS (3)
  1. MYONAL [Concomitant]
     Active Substance: EPERISONE HYDROCHLORIDE
  2. FASLODEX [Suspect]
     Active Substance: FULVESTRANT
     Indication: BREAST CANCER FEMALE
     Dosage: 1 SEPARATE DOSE
     Route: 030
     Dates: end: 201708
  3. OPALMON [Concomitant]
     Active Substance: LIMAPROST

REACTIONS (8)
  - Decreased appetite [Unknown]
  - Asthenia [Unknown]
  - Liver function test increased [Recovered/Resolved]
  - Malaise [Unknown]
  - Hepatitis C [Unknown]
  - Hypoaesthesia [Unknown]
  - Musculoskeletal stiffness [Unknown]
  - Breast cancer recurrent [Unknown]

NARRATIVE: CASE EVENT DATE: 201708
